FAERS Safety Report 12788018 (Version 2)
Quarter: 2016Q4

REPORT INFORMATION
  Report Type: Spontaneous
  Country: DE (occurrence: DE)
  Receive Date: 20160928
  Receipt Date: 20161017
  Transmission Date: 20170207
  Serious: Yes (Other)
  Sender: FDA-Public Use
  Company Number: DE-BAYER-2016-187414

PATIENT
  Age: 30 Year
  Sex: Female

DRUGS (1)
  1. JAYDESS [Suspect]
     Active Substance: LEVONORGESTREL
     Indication: CONTRACEPTION
     Dosage: 14 MCG/24HR, CONT
     Route: 015

REACTIONS (6)
  - Pregnancy with contraceptive device [None]
  - Abortion spontaneous [None]
  - Endometrial atrophy [None]
  - Human chorionic gonadotropin increased [None]
  - Human chorionic gonadotropin decreased [None]
  - Haemorrhage in pregnancy [None]

NARRATIVE: CASE EVENT DATE: 2016
